FAERS Safety Report 8915492 (Version 2)
Quarter: 2013Q4

REPORT INFORMATION
  Report Type: Spontaneous
  Country: US (occurrence: US)
  Receive Date: 20121119
  Receipt Date: 20131209
  Transmission Date: 20140711
  Serious: No
  Sender: FDA-Public Use
  Company Number: US-PFIZER INC-2012284451

PATIENT
  Age: 56 Year
  Sex: Female

DRUGS (5)
  1. DOXYCYCLINE HYCLATE [Suspect]
     Dosage: UNK
  2. CELEBREX [Suspect]
     Dosage: UNK
  3. NAPROXEN SODIUM [Suspect]
     Dosage: UNK
  4. BUSPAR [Suspect]
     Dosage: UNK
  5. MOTRIN [Suspect]
     Dosage: UNK

REACTIONS (1)
  - Drug hypersensitivity [Unknown]
